FAERS Safety Report 8886718 (Version 2)
Quarter: 2013Q1

REPORT INFORMATION
  Report Type: Spontaneous
  Country: DK (occurrence: DK)
  Receive Date: 20121105
  Receipt Date: 20130118
  Transmission Date: 20140127
  Serious: Yes (Other)
  Sender: FDA-Public Use
  Company Number: PHHY2012DK100082

PATIENT
  Sex: Female

DRUGS (1)
  1. LEPONEX [Suspect]
     Dosage: 300 MG, QD
     Dates: start: 201203

REACTIONS (4)
  - Encephalitis [Not Recovered/Not Resolved]
  - Epilepsy [Not Recovered/Not Resolved]
  - Myoclonus [Not Recovered/Not Resolved]
  - Electroencephalogram abnormal [Not Recovered/Not Resolved]
